FAERS Safety Report 6747095-8 (Version None)
Quarter: 2010Q2

REPORT INFORMATION
  Report Type: 
  Country: None (occurrence: None)
  Receive Date: 20100528
  Receipt Date: 20100525
  Transmission Date: 20101027
  Serious: Yes (Death, Hospitalization)
  Sender: FDA-Public Use
  Company Number: US-ABBOTT-09P-163-0582778-00

PATIENT
  Sex: Male
  Weight: 64.922 kg

DRUGS (23)
  1. NORVIR [Suspect]
     Indication: HIV INFECTION
     Route: 048
     Dates: start: 20080901, end: 20090303
  2. NORVIR [Suspect]
     Route: 048
  3. MARAVIROC [Suspect]
     Indication: DRUG USE FOR UNKNOWN INDICATION
  4. EPZICOM [Suspect]
     Indication: HIV INFECTION
     Route: 048
     Dates: start: 20080901, end: 20090303
  5. EPZICOM [Suspect]
  6. REYATAZ [Suspect]
     Indication: HIV INFECTION
     Route: 048
     Dates: start: 20080901, end: 20090303
  7. REYATAZ [Suspect]
     Route: 048
  8. SEPTRA [Concomitant]
     Indication: DRUG USE FOR UNKNOWN INDICATION
     Dates: start: 20060101
  9. TRAZODONE HCL [Concomitant]
     Indication: DRUG USE FOR UNKNOWN INDICATION
     Dates: start: 20080101
  10. FLUOXETINE [Concomitant]
     Indication: DRUG USE FOR UNKNOWN INDICATION
     Dates: start: 20090129
  11. IBUPROFEN [Concomitant]
     Indication: DRUG USE FOR UNKNOWN INDICATION
     Dates: start: 20060101
  12. ASPIRIN [Concomitant]
     Indication: DRUG USE FOR UNKNOWN INDICATION
     Dates: start: 20080101
  13. TYLENOL (CAPLET) [Concomitant]
     Indication: DRUG USE FOR UNKNOWN INDICATION
     Dates: start: 20080401
  14. CODEINE SULFATE [Concomitant]
     Indication: DRUG USE FOR UNKNOWN INDICATION
     Dates: start: 20080401
  15. FLUTICASONE PROPIONATE [Concomitant]
     Indication: DRUG USE FOR UNKNOWN INDICATION
     Dates: start: 20080101
  16. VALTREX [Concomitant]
     Indication: DRUG USE FOR UNKNOWN INDICATION
     Dates: start: 20070501
  17. KETOCONAZOLE [Concomitant]
     Indication: DRUG USE FOR UNKNOWN INDICATION
     Dates: start: 20000212
  18. PSEUDOEPHEDRINE [Concomitant]
     Indication: DRUG USE FOR UNKNOWN INDICATION
     Dates: start: 20080218
  19. BISACODYL [Concomitant]
     Indication: DRUG USE FOR UNKNOWN INDICATION
     Dates: start: 20080401
  20. AMITRIPTYLINE [Concomitant]
     Indication: DRUG USE FOR UNKNOWN INDICATION
     Dates: start: 20080401
  21. CIPROFLOXACIN HYDROCHLORIDE [Concomitant]
     Indication: DRUG USE FOR UNKNOWN INDICATION
     Dates: start: 20080226
  22. ELAVIL [Concomitant]
     Indication: DRUG USE FOR UNKNOWN INDICATION
     Dates: start: 20080226
  23. TAC-3 [Concomitant]
     Indication: DRUG USE FOR UNKNOWN INDICATION
     Dates: start: 20080212

REACTIONS (8)
  - ACUTE SINUSITIS [None]
  - DEATH [None]
  - ENCEPHALOPATHY [None]
  - GASTROOESOPHAGEAL REFLUX DISEASE [None]
  - LIVER FUNCTION TEST ABNORMAL [None]
  - PANCYTOPENIA [None]
  - PNEUMONIA STAPHYLOCOCCAL [None]
  - RESPIRATORY FAILURE [None]
